FAERS Safety Report 19872853 (Version 1)
Quarter: 2021Q3

REPORT INFORMATION
  Report Type: Report from Study
  Country: IT (occurrence: IT)
  Receive Date: 20210922
  Receipt Date: 20210922
  Transmission Date: 20211014
  Serious: Yes (Hospitalization)
  Sender: FDA-Public Use
  Company Number: IT-VER-202100004

PATIENT
  Age: 76 Year
  Sex: Male

DRUGS (12)
  1. TRIPTORELIN [Suspect]
     Active Substance: TRIPTORELIN
     Indication: SALIVARY GLAND CANCER
     Dosage: 3.75 MG, 1X/MONTH
     Route: 030
     Dates: start: 20200115, end: 20200311
  2. ALFUZOSINA [Concomitant]
     Active Substance: ALFUZOSIN HYDROCHLORIDE
     Indication: PRODUCT USED FOR UNKNOWN INDICATION
     Dosage: 10 MG 1CP/DIE
     Route: 065
  3. BICALUTAMIDE. [Suspect]
     Active Substance: BICALUTAMIDE
     Indication: SALIVARY GLAND CANCER
     Dosage: 50 MG, 1X/DAY
     Route: 048
     Dates: start: 20200108, end: 20200331
  4. PREGABALIN. [Concomitant]
     Active Substance: PREGABALIN
     Indication: NEUROMUSCULAR PAIN
     Dosage: 150 MG, 1X/DAY
     Route: 048
     Dates: start: 20190617
  5. PARACETAMOL [Concomitant]
     Active Substance: ACETAMINOPHEN
     Indication: PRODUCT USED FOR UNKNOWN INDICATION
     Route: 065
  6. FEBUXOSTAT. [Concomitant]
     Active Substance: FEBUXOSTAT
     Indication: PRODUCT USED FOR UNKNOWN INDICATION
     Route: 065
  7. RAMIPRIL. [Concomitant]
     Active Substance: RAMIPRIL
     Indication: HYPERTENSION
     Dosage: 2.5 MG, 1X/DAY
     Route: 048
     Dates: start: 20190620
  8. FUROSEMIDE. [Concomitant]
     Active Substance: FUROSEMIDE
     Indication: OEDEMA
     Dosage: 75 MG, 1X/DAY
     Route: 048
     Dates: start: 20190620
  9. PREDNISONE. [Concomitant]
     Active Substance: PREDNISONE
     Indication: VERTEBRAL END PLATE INFLAMMATION
     Dosage: 25 MG, 1X/DAY
     Route: 048
     Dates: start: 20190617
  10. FENTANIL [Concomitant]
     Active Substance: FENTANYL
     Indication: PRODUCT USED FOR UNKNOWN INDICATION
     Dosage: 25 UNK, EVERY 72 HOURS
     Route: 065
  11. PARACETAMOL [Concomitant]
     Active Substance: ACETAMINOPHEN
     Indication: PRODUCT USED FOR UNKNOWN INDICATION
     Route: 065
  12. ATORVASTATINA [Concomitant]
     Active Substance: ATORVASTATIN
     Indication: PRODUCT USED FOR UNKNOWN INDICATION
     Dosage: 10 MG 1CP/DIE
     Route: 065

REACTIONS (1)
  - Spinal fracture [Not Recovered/Not Resolved]

NARRATIVE: CASE EVENT DATE: 20200331
